FAERS Safety Report 20535358 (Version 1)
Quarter: 2022Q1

REPORT INFORMATION
  Report Type: Spontaneous
  Country: CA (occurrence: CA)
  Receive Date: 20220302
  Receipt Date: 20220302
  Transmission Date: 20220423
  Serious: Yes (Other)
  Sender: FDA-Public Use
  Company Number: CA-JNJFOC-20210838635

PATIENT
  Age: 18 Year
  Sex: Female
  Weight: 81.720 kg

DRUGS (3)
  1. CONCERTA [Suspect]
     Active Substance: METHYLPHENIDATE HYDROCHLORIDE
     Indication: Product used for unknown indication
     Route: 048
  2. DIAZEPAM [Concomitant]
     Active Substance: DIAZEPAM
     Route: 065
  3. RISPERDAL [Concomitant]
     Active Substance: RISPERIDONE
     Route: 065

REACTIONS (2)
  - Aggression [Unknown]
  - Product substitution issue [Unknown]
